FAERS Safety Report 10881673 (Version 1)
Quarter: 2015Q1

REPORT INFORMATION
  Report Type: Report from Study
  Country: US (occurrence: US)
  Receive Date: 20150303
  Receipt Date: 20150303
  Transmission Date: 20150721
  Serious: Yes (Death, Hospitalization)
  Sender: FDA-Public Use
  Company Number: US-MERCK-1502USA006197

PATIENT
  Age: 73 Year
  Sex: Male
  Weight: 65.9 kg

DRUGS (6)
  1. BORTEZOMIB [Suspect]
     Active Substance: BORTEZOMIB
     Dosage: 1.3 MG/M2, ON DAYS 1,8 AND 15
     Route: 058
     Dates: start: 20140320, end: 20140403
  2. MK-7965 [Suspect]
     Active Substance: DINACICLIB
     Indication: PLASMA CELL MYELOMA
     Dosage: 12 MG/M2 2 HOURS ON DAYS 1, 8 AND 15. CYCLE = 28 DAYS.
     Route: 042
     Dates: start: 20150129, end: 20150205
  3. MK-7965 [Suspect]
     Active Substance: DINACICLIB
     Dosage: 12 MG/M2 2 HOURS ON DAYS 1, 8 AND 15. CYCLE = 28 DAYS
     Route: 042
     Dates: start: 20140320, end: 20140403
  4. DEXAMETHASONE. [Suspect]
     Active Substance: DEXAMETHASONE
     Dosage: 20 MG, ON DAYS 1,2,8,9,15 AND 16
     Route: 048
     Dates: start: 20140320, end: 20140404
  5. BORTEZOMIB [Suspect]
     Active Substance: BORTEZOMIB
     Indication: PLASMA CELL MYELOMA
     Dosage: 1.3 MG/M2, ON DAYS 1,8 AND 15
     Route: 058
     Dates: start: 20150129, end: 20150205
  6. DEXAMETHASONE. [Suspect]
     Active Substance: DEXAMETHASONE
     Indication: PLASMA CELL MYELOMA
     Dosage: 20 MG, ON DAYS 1,2,8,9,15 AND 16
     Route: 048
     Dates: start: 20150129, end: 20150206

REACTIONS (1)
  - Lung infection [Fatal]

NARRATIVE: CASE EVENT DATE: 20150208
